FAERS Safety Report 4368387-6 (Version None)
Quarter: 2004Q2

REPORT INFORMATION
  Report Type: 
  Country: None (occurrence: None)
  Receive Date: 20040602
  Receipt Date: 20040524
  Transmission Date: 20050107
  Serious: Yes (Hospitalization, Disabling)
  Sender: FDA-Public Use
  Company Number: US-GLAXOSMITHKLINE-A0512349A

PATIENT
  Age: 47 Year
  Sex: Female

DRUGS (10)
  1. IMITREX [Suspect]
     Indication: DRUG USE FOR UNKNOWN INDICATION
     Route: 058
     Dates: start: 19960901, end: 20020401
  2. IMITREX [Suspect]
     Route: 048
  3. VALIUM [Concomitant]
  4. PROZAC [Concomitant]
  5. BUSPAR [Concomitant]
  6. VANQUISH [Concomitant]
  7. ATENOLOL [Concomitant]
  8. ALLEGRA [Concomitant]
  9. UNSPECIFIED MEDICATION [Concomitant]
  10. FLEXERIL [Concomitant]

REACTIONS (4)
  - APHASIA [None]
  - APRAXIA [None]
  - CAROTID ARTERY DISEASE [None]
  - EMBOLIC STROKE [None]
